FAERS Safety Report 6198478 (Version 3)
Quarter: 2015Q2

REPORT INFORMATION
  Report Type: Report from Study
  Country: US (occurrence: US)
  Receive Date: 20061220
  Receipt Date: 20150618
  Transmission Date: 20150821
  Serious: Yes (Hospitalization)
  Sender: FDA-Public Use
  Company Number: US-ELI_LILLY_AND_COMPANY-US200610002121

PATIENT
  Age: 6 Year
  Sex: Female
  Weight: 15.4 kg

DRUGS (5)
  1. NASOCORT [Concomitant]
     Active Substance: BUDESONIDE
     Indication: SEASONAL ALLERGY
     Dates: start: 2004
  2. SOMATROPIN [Suspect]
     Active Substance: SOMATROPIN
     Dosage: 0.8 MG, DAILY (1/D)
     Route: 058
     Dates: start: 20060612, end: 20060615
  3. CLARITIN [Concomitant]
     Active Substance: LORATADINE
     Indication: SEASONAL ALLERGY
     Dates: start: 2004
  4. SOMATROPIN [Suspect]
     Active Substance: SOMATROPIN
     Indication: TURNER^S SYNDROME
     Dates: start: 20010731, end: 20020328
  5. SOMATROPIN [Suspect]
     Active Substance: SOMATROPIN
     Dosage: 0.8 MG, DAILY (1/D)
     Route: 058
     Dates: start: 20061016

REACTIONS (1)
  - Mediastinal mass [Recovered/Resolved]

NARRATIVE: CASE EVENT DATE: 20060829
